FAERS Safety Report 6573752-2 (Version None)
Quarter: 2010Q1

REPORT INFORMATION
  Report Type: 
  Country: None (occurrence: None)
  Receive Date: 20100208
  Receipt Date: 20100201
  Transmission Date: 20100710
  Serious: Yes (Other)
  Sender: FDA-Public Use
  Company Number: B0630104A

PATIENT
  Age: 24 Year
  Sex: Female

DRUGS (5)
  1. LAMIVUDINE [Suspect]
     Indication: HIV INFECTION
  2. RITONAVIR [Suspect]
     Indication: HIV INFECTION
     Route: 065
  3. NEVIRAPINE [Suspect]
     Indication: HIV INFECTION
  4. VIREAD [Suspect]
     Indication: HIV INFECTION
     Route: 048
  5. REYATAZ [Suspect]
     Indication: HIV INFECTION
     Route: 065

REACTIONS (4)
  - BLOOD BILIRUBIN INCREASED [None]
  - HYPERBILIRUBINAEMIA [None]
  - JAUNDICE [None]
  - NORMAL NEWBORN [None]
